FAERS Safety Report 10503578 (Version 2)
Quarter: 2014Q4

REPORT INFORMATION
  Report Type: Spontaneous
  Country: US (occurrence: US)
  Receive Date: 20141008
  Receipt Date: 20141017
  Transmission Date: 20150528
  Serious: Yes (Death, Other)
  Sender: FDA-Public Use
  Company Number: US-TEVA-512911USA

PATIENT
  Age: 71 Year
  Sex: Female

DRUGS (7)
  1. COUMADIN [Suspect]
     Active Substance: WARFARIN SODIUM
     Route: 065
  2. INSULIN [Suspect]
     Active Substance: INSULIN NOS
     Route: 065
  3. LIPITOR [Suspect]
     Active Substance: ATORVASTATIN CALCIUM
     Route: 065
  4. WARFARIN [Suspect]
     Active Substance: WARFARIN
  5. POTASSIUM [Suspect]
     Active Substance: POTASSIUM
     Route: 065
  6. LASIX [Suspect]
     Active Substance: FUROSEMIDE
     Route: 065
  7. XARELTO [Suspect]
     Active Substance: RIVAROXABAN
     Route: 065

REACTIONS (1)
  - Myocardial infarction [Fatal]
